FAERS Safety Report 6279091-1 (Version None)
Quarter: 2009Q3

REPORT INFORMATION
  Report Type: 
  Country: None (occurrence: None)
  Receive Date: 20090723
  Receipt Date: 20080612
  Transmission Date: 20100115
  Serious: No
  Sender: FDA-Public Use
  Company Number: US-AMGEN-KDL287446

PATIENT
  Sex: Female
  Weight: 149.8 kg

DRUGS (8)
  1. PROCRIT [Suspect]
     Indication: PREOPERATIVE CARE
     Dates: start: 20080514
  2. COREG [Concomitant]
  3. LISINOPRIL [Concomitant]
  4. AVANDIA [Concomitant]
     Dates: end: 20080611
  5. METFORMIN HCL [Concomitant]
     Dates: end: 20080501
  6. EFFEXOR [Concomitant]
  7. ALLOPURINOL [Concomitant]
  8. MOBIC [Concomitant]

REACTIONS (9)
  - ASTHENIA [None]
  - CHOLINERGIC SYNDROME [None]
  - DIPLOPIA [None]
  - FATIGUE [None]
  - OEDEMA [None]
  - OEDEMA PERIPHERAL [None]
  - VISUAL ACUITY REDUCED [None]
  - VISUAL FIELD DEFECT [None]
  - WEIGHT DECREASED [None]
